FAERS Safety Report 8043326-5 (Version None)
Quarter: 2012Q1

REPORT INFORMATION
  Report Type: 
  Country: None (occurrence: None)
  Receive Date: 20120112
  Receipt Date: 20120102
  Transmission Date: 20120608
  Serious: Yes (Other)
  Sender: FDA-Public Use
  Company Number: FR-GLAXOSMITHKLINE-B0772496A

PATIENT
  Sex: Female

DRUGS (7)
  1. PROMACTA [Suspect]
     Indication: IDIOPATHIC THROMBOCYTOPENIC PURPURA
     Dosage: 50MG PER DAY
     Route: 048
     Dates: start: 20110103, end: 20111114
  2. FEROGRAD [Concomitant]
     Indication: IRON DEFICIENCY
     Dates: start: 20110523
  3. DESOGESTREL AND ETHINYL ESTRADIOL [Concomitant]
     Indication: MENORRHAGIA
     Dates: start: 20110603, end: 20110718
  4. VENOFER [Concomitant]
     Dates: start: 20110526
  5. SPECIAFOLDINE [Concomitant]
     Indication: IRON DEFICIENCY
     Dates: start: 20110523
  6. NORGESTIMATE AND ETHINYL ESTRADIOL [Concomitant]
     Indication: MENORRHAGIA
     Dates: start: 20110926
  7. SURGESTONE [Concomitant]
     Indication: GENITAL HAEMORRHAGE
     Dates: start: 20110718, end: 20110926

REACTIONS (3)
  - TACHYCARDIA [None]
  - TREATMENT NONCOMPLIANCE [None]
  - PALPITATIONS [None]
